FAERS Safety Report 7535273-X (Version None)
Quarter: 2011Q2

REPORT INFORMATION
  Report Type: 
  Country: None (occurrence: None)
  Receive Date: 20110609
  Receipt Date: 20080128
  Transmission Date: 20111010
  Serious: Yes (Other)
  Sender: FDA-Public Use
  Company Number: PHFR2007IE02315

PATIENT
  Sex: Male

DRUGS (3)
  1. CLOZAPINE [Suspect]
     Indication: SCHIZOPHRENIA
     Route: 048
     Dates: start: 19970917
  2. SERTRALINE HYDROCHLORIDE [Concomitant]
     Indication: ANXIETY
  3. SERTRALINE HYDROCHLORIDE [Concomitant]
     Indication: DEPRESSION
     Dosage: 125 MG, UNK
     Route: 065

REACTIONS (4)
  - SOMNOLENCE [None]
  - FATIGUE [None]
  - METASTASES TO KIDNEY [None]
  - HAEMOGLOBIN DECREASED [None]
